FAERS Safety Report 7017092-6 (Version None)
Quarter: 2010Q3

REPORT INFORMATION
  Report Type: 
  Country: None (occurrence: None)
  Receive Date: 20100928
  Receipt Date: 20100917
  Transmission Date: 20110219
  Serious: Yes (Other)
  Sender: FDA-Public Use
  Company Number: FR-BIOGENIDEC-2010BI013796

PATIENT
  Age: 32 Year
  Sex: Female

DRUGS (3)
  1. TYSABRI [Suspect]
     Indication: MULTIPLE SCLEROSIS
     Route: 042
     Dates: start: 20070809, end: 20091130
  2. TYSABRI [Suspect]
     Route: 042
     Dates: start: 20100125
  3. ANTIMUSCARINIC (NOS) [Concomitant]

REACTIONS (1)
  - CHRONIC MYELOID LEUKAEMIA [None]
